FAERS Safety Report 11982530 (Version 3)
Quarter: 2016Q2

REPORT INFORMATION
  Report Type: Spontaneous
  Country: JP (occurrence: JP)
  Receive Date: 20160201
  Receipt Date: 20160425
  Transmission Date: 20160815
  Serious: Yes (Hospitalization)
  Sender: FDA-Public Use
  Company Number: JP-009507513-1601JPN009172

PATIENT
  Age: 76 Year
  Sex: Male

DRUGS (4)
  1. HALCION [Suspect]
     Active Substance: TRIAZOLAM
     Dosage: 4 DF, HS
     Route: 048
     Dates: start: 20160121, end: 20160121
  2. BELSOMRA [Suspect]
     Active Substance: SUVOREXANT
     Dosage: 105 MG(7 PIECES), HS
     Route: 048
     Dates: start: 20160121, end: 20160121
  3. BELSOMRA [Suspect]
     Active Substance: SUVOREXANT
     Indication: INSOMNIA
     Dosage: 15 MG, QD
     Route: 048
     Dates: start: 2015, end: 20160120
  4. HALCION [Suspect]
     Active Substance: TRIAZOLAM
     Indication: INSOMNIA
     Dosage: DAILY DOSE UNKNOWN
     Route: 048
     Dates: start: 2015, end: 20160120

REACTIONS (2)
  - Somnolence [Unknown]
  - Overdose [Unknown]

NARRATIVE: CASE EVENT DATE: 20160121
